FAERS Safety Report 4905022-X (Version None)
Quarter: 2006Q1

REPORT INFORMATION
  Report Type: 
  Country: None (occurrence: None)
  Receive Date: 20060208
  Receipt Date: 20051104
  Transmission Date: 20060701
  Serious: No
  Sender: FDA-Public Use
  Company Number: US-GLAXOSMITHKLINE-A0580945A

PATIENT
  Age: 67 Year
  Sex: Female

DRUGS (6)
  1. PAROXETINE HCL [Suspect]
     Dosage: 30MG PER DAY
     Route: 048
     Dates: start: 20050908
  2. PAXIL CR [Suspect]
     Dosage: 25MG PER DAY
     Route: 048
     Dates: start: 20051015
  3. LAMICTAL [Concomitant]
  4. SYNTHROID [Concomitant]
  5. VITAMIN [Concomitant]
  6. ALLERGY MEDICATION [Concomitant]
     Route: 048

REACTIONS (1)
  - URTICARIA [None]
